FAERS Safety Report 25125377 (Version 1)
Quarter: 2025Q1

REPORT INFORMATION
  Report Type: Spontaneous
  Country: US (occurrence: None)
  Receive Date: 20250326
  Receipt Date: 20250326
  Transmission Date: 20250409
  Serious: Yes (Other)
  Sender: FDA-CTU
  Company Number: None

PATIENT
  Age: 77 Year
  Sex: Female
  Weight: 68 kg

DRUGS (1)
  1. ATTRUBY [Suspect]
     Active Substance: ACORAMIDIS HYDROCHLORIDE
     Indication: Amyloidosis
     Dosage: FREQUENCY : TWICE A DAY;?
     Route: 048
     Dates: start: 20250211, end: 20250226

REACTIONS (3)
  - Nausea [None]
  - Anxiety [None]
  - Decreased appetite [None]

NARRATIVE: CASE EVENT DATE: 20250226
